FAERS Safety Report 7551448-8 (Version None)
Quarter: 2011Q2

REPORT INFORMATION
  Report Type: 
  Country: None (occurrence: None)
  Receive Date: 20110616
  Receipt Date: 20110601
  Transmission Date: 20111010
  Serious: Yes (Life-Threatening)
  Sender: FDA-Public Use
  Company Number: PHHY2011JP25419

PATIENT
  Sex: Male
  Weight: 54 kg

DRUGS (38)
  1. EXJADE [Suspect]
     Dosage: 1000 MG, DAILY
     Route: 048
     Dates: start: 20100806, end: 20101110
  2. LANSOPRAZOLE [Concomitant]
     Dosage: 15 MG, UNK
     Route: 048
     Dates: end: 20110318
  3. MIDODRINE HYDROCHLORIDE [Concomitant]
     Dosage: 8 MG, UNK
     Route: 048
     Dates: end: 20110318
  4. MUCOSTA [Concomitant]
     Dosage: 300 MG, UNK
     Route: 048
     Dates: end: 20110318
  5. RED BLOOD CELLS, CONCENTRATED [Concomitant]
     Dosage: 2 UNITS, UNK
     Dates: start: 20100728
  6. RED BLOOD CELLS, CONCENTRATED [Concomitant]
     Dosage: 2 UNITS, UNK
     Dates: start: 20101014
  7. RED BLOOD CELLS, CONCENTRATED [Concomitant]
     Dosage: 2 UNITS, UNK
     Dates: start: 20101029
  8. RED BLOOD CELLS, CONCENTRATED [Concomitant]
     Dosage: 2 UNITS, UNK
     Dates: start: 20101129
  9. CARTOL [Concomitant]
     Dosage: 0.25 UG, UNK
     Route: 048
     Dates: end: 20110318
  10. RED BLOOD CELLS, CONCENTRATED [Concomitant]
     Dosage: 2 UNITS, UNK
     Dates: start: 20100720
  11. RED BLOOD CELLS, CONCENTRATED [Concomitant]
     Dosage: 2 UNITS, UNK
     Dates: start: 20101027
  12. RED BLOOD CELLS, CONCENTRATED [Concomitant]
     Dosage: 2 UNITS, UNK
     Dates: start: 20101126
  13. RED BLOOD CELLS, CONCENTRATED [Concomitant]
     Dosage: 2 UNITS, UNK
     Dates: start: 20110119
  14. RED BLOOD CELLS, CONCENTRATED [Concomitant]
     Dosage: 2 UNITS, UNK
     Dates: start: 20100818
  15. RED BLOOD CELLS, CONCENTRATED [Concomitant]
     Dosage: 2 UNITS, UNK
     Dates: start: 20101108
  16. RED BLOOD CELLS, CONCENTRATED [Concomitant]
     Dosage: 2 UNITS, UNK
     Dates: start: 20101112
  17. RED BLOOD CELLS, CONCENTRATED [Concomitant]
     Dosage: 2 UNITS, UNK
     Dates: start: 20101124
  18. RED BLOOD CELLS, CONCENTRATED [Concomitant]
     Dosage: 2 UNITS, UNK
     Dates: start: 20110128
  19. RED BLOOD CELLS, CONCENTRATED [Concomitant]
     Dosage: 2 UNITS, UNK
     Dates: start: 20110131
  20. SIGMART [Concomitant]
     Dosage: 15 MG, UNK
     Route: 048
     Dates: end: 20110318
  21. ALLEGRA [Concomitant]
     Dosage: 120 MG, UNK
     Route: 048
     Dates: end: 20110318
  22. RED BLOOD CELLS, CONCENTRATED [Concomitant]
     Dosage: 2 UNITS, UNK
     Dates: start: 20101013
  23. RED BLOOD CELLS, CONCENTRATED [Concomitant]
     Dosage: 2 UNITS, UNK
     Dates: start: 20101208
  24. RED BLOOD CELLS, CONCENTRATED [Concomitant]
     Dosage: 2 UNITS, UNK
     Dates: start: 20101213
  25. EXJADE [Suspect]
     Indication: IRON OVERLOAD
     Dosage: 500 MG, DAILY
     Route: 048
     Dates: start: 20100705, end: 20100805
  26. ISOSORBIDE DINITRATE [Concomitant]
     Dosage: 40 MG, UNK
     Route: 048
     Dates: end: 20110318
  27. RED BLOOD CELLS, CONCENTRATED [Concomitant]
     Dosage: 2 U, UNK
     Dates: start: 20100709
  28. RED BLOOD CELLS, CONCENTRATED [Concomitant]
     Dosage: 2 UNITS, UNK
     Dates: start: 20100712
  29. RED BLOOD CELLS, CONCENTRATED [Concomitant]
     Dosage: 2 UNITS, UNK
     Dates: start: 20110103
  30. RED BLOOD CELLS, CONCENTRATED [Concomitant]
     Dosage: 2 UNITS, UNK
     Dates: start: 20110105
  31. ASPIRIN [Concomitant]
     Dosage: 100 MG, UNK
     Route: 048
     Dates: end: 20110318
  32. LEVOTHYROXINE SODIUM [Concomitant]
     Dosage: 50 UG, UNK
     Route: 048
     Dates: end: 20110318
  33. RED BLOOD CELLS, CONCENTRATED [Concomitant]
     Dosage: 2 UNITS, UNK
     Dates: start: 20100920
  34. AMEZINIUM METILSULFATE [Concomitant]
     Dosage: 20 MG, UNK
     Route: 048
     Dates: end: 20110318
  35. GASMOTIN [Concomitant]
     Dosage: 15 MG, UNK
     Route: 048
     Dates: end: 20110318
  36. RED BLOOD CELLS, CONCENTRATED [Concomitant]
     Dosage: 2 UNITS, UNK
     Dates: start: 20100922
  37. CARVEDILOL [Concomitant]
     Dosage: 2.5 MG, UNK
     Route: 048
     Dates: end: 20110318
  38. RED BLOOD CELLS, CONCENTRATED [Concomitant]
     Dosage: 2 UNITS, UNK
     Dates: start: 20101210

REACTIONS (3)
  - CARDIAC FAILURE [None]
  - MALNUTRITION [None]
  - GENERAL PHYSICAL HEALTH DETERIORATION [None]
